FAERS Safety Report 5238425-7 (Version None)
Quarter: 2007Q1

REPORT INFORMATION
  Report Type: 
  Country: None (occurrence: None)
  Receive Date: 20070215
  Receipt Date: 20070208
  Transmission Date: 20070707
  Serious: Yes (Other)
  Sender: FDA-Public Use
  Company Number: 2007UW02615

PATIENT
  Age: 52 Year
  Sex: Female

DRUGS (2)
  1. ARIMIDEX [Suspect]
     Indication: BREAST CANCER FEMALE
     Route: 048
  2. HERBAL MEDICINE [Concomitant]

REACTIONS (2)
  - EMBOLISM [None]
  - VISUAL DISTURBANCE [None]
